FAERS Safety Report 24326619 (Version 1)
Quarter: 2024Q3

REPORT INFORMATION
  Report Type: Spontaneous
  Country: US (occurrence: US)
  Receive Date: 20240917
  Receipt Date: 20240917
  Transmission Date: 20241016
  Serious: Yes (Death, Life-Threatening, Hospitalization, Other)
  Sender: DR REDDYS
  Company Number: None

PATIENT
  Age: 45 Year
  Sex: Male

DRUGS (1)
  1. FENTANYL [Suspect]
     Active Substance: FENTANYL\FENTANYL CITRATE
     Indication: Product used for unknown indication

REACTIONS (10)
  - Central nervous system necrosis [Fatal]
  - Unresponsive to stimuli [Fatal]
  - Toxicity to various agents [Fatal]
  - Hydrocephalus [Fatal]
  - Cerebral microhaemorrhage [Fatal]
  - Brain herniation [Fatal]
  - Cerebral infarction [Fatal]
  - CHANTER syndrome [Fatal]
  - Brainstem compression [Fatal]
  - Respiratory depression [Recovering/Resolving]
